FAERS Safety Report 7737673-1 (Version None)
Quarter: 2011Q3

REPORT INFORMATION
  Report Type: 
  Country: None (occurrence: None)
  Receive Date: 20110902
  Receipt Date: 20110818
  Transmission Date: 20111222
  Serious: Yes (Other)
  Sender: FDA-Public Use
  Company Number: 2011MA001277

PATIENT
  Age: 37 Year
  Sex: Female

DRUGS (4)
  1. BUPRENORPHINE [Suspect]
     Indication: SYMPHYSIOLYSIS
     Dosage: 10 MCG; QH; TDER
     Route: 062
     Dates: start: 20101215, end: 20101229
  2. CO-CODAMOL (PANADEINE CO) [Suspect]
     Indication: SYMPHYSIOLYSIS
     Dosage: PO
     Route: 048
  3. MS CONTIN [Suspect]
     Indication: SYMPHYSIOLYSIS
     Dosage: 5 MG
     Dates: start: 20100922
  4. FEVERALL [Suspect]
     Indication: SYMPHYSIOLYSIS
     Dosage: 1 GM

REACTIONS (3)
  - DRUG INEFFECTIVE [None]
  - STILLBIRTH [None]
  - MATERNAL EXPOSURE DURING PREGNANCY [None]
